FAERS Safety Report 16260981 (Version 21)
Quarter: 2020Q2

REPORT INFORMATION
  Report Type: Spontaneous
  Country: US (occurrence: US)
  Receive Date: 20190501
  Receipt Date: 20200407
  Transmission Date: 20200713
  Serious: Yes (Hospitalization)
  Sender: FDA-Public Use
  Company Number: US-ACTELION-A-NJ2019-189857

PATIENT
  Age: 47 Year
  Sex: Male
  Weight: 81.63 kg

DRUGS (5)
  1. OPSUMIT [Suspect]
     Active Substance: MACITENTAN
     Indication: PULMONARY ARTERIAL HYPERTENSION
     Dosage: 10 MG, QD
     Route: 048
  2. CHLORAPREP [Suspect]
     Active Substance: CHLORHEXIDINE GLUCONATE\ISOPROPYL ALCOHOL
     Indication: PRODUCT USED FOR UNKNOWN INDICATION
     Route: 061
  3. ORENITRAM [Concomitant]
     Active Substance: TREPROSTINIL
  4. SILVASORB [Suspect]
     Active Substance: SILVER OXIDE
     Indication: PRODUCT USED FOR UNKNOWN INDICATION
     Dosage: UNK
     Route: 065
  5. REMODULIN [Suspect]
     Active Substance: TREPROSTINIL
     Indication: PRODUCT USED FOR UNKNOWN INDICATION
     Dosage: UNK
     Route: 042

REACTIONS (20)
  - Staphylococcal infection [Unknown]
  - Catheter site rash [Unknown]
  - Heart rate increased [Recovering/Resolving]
  - Pyrexia [Unknown]
  - Cough [Unknown]
  - Application site hypersensitivity [Unknown]
  - Catheter site vesicles [Unknown]
  - Device dislocation [Unknown]
  - Nausea [Unknown]
  - Clostridium difficile infection [Unknown]
  - Catheter management [Unknown]
  - Chills [Unknown]
  - Hospitalisation [Unknown]
  - Catheter site discharge [Unknown]
  - Headache [Unknown]
  - Sepsis [Unknown]
  - Catheter site irritation [Unknown]
  - Pneumonia [Unknown]
  - Vascular device infection [Unknown]
  - Vomiting [Unknown]

NARRATIVE: CASE EVENT DATE: 20190526
